FAERS Safety Report 23146475 (Version 1)
Quarter: 2023Q4

REPORT INFORMATION
  Report Type: Other
  Country: None (occurrence: US)
  Receive Date: 20231104
  Receipt Date: 20231104
  Transmission Date: 20240109
  Serious: Yes (Life-Threatening, Hospitalization)
  Sender: FDA-Public Use
  Company Number: US-B.Braun Medical Inc.-2147815

PATIENT
  Age: 49 Year
  Sex: Female

DRUGS (6)
  1. HEPARIN SODIUM IN DEXTROSE [Suspect]
     Active Substance: HEPARIN SODIUM
     Indication: Thrombosis prophylaxis
     Route: 042
  2. ARGATROBAN [Suspect]
     Active Substance: ARGATROBAN
  3. CANGRELOR [Suspect]
     Active Substance: CANGRELOR
  4. TICAGRELOR [Suspect]
     Active Substance: TICAGRELOR
  5. ASPIRIN [Suspect]
     Active Substance: ASPIRIN
  6. APIXABAN [Suspect]
     Active Substance: APIXABAN

REACTIONS (2)
  - Drug ineffective [None]
  - Haemorrhage [None]
